FAERS Safety Report 10064683 (Version 1)
Quarter: 2014Q2

REPORT INFORMATION
  Report Type: Spontaneous
  Country: US (occurrence: None)
  Receive Date: 20140407
  Receipt Date: 20140407
  Transmission Date: 20141212
  Serious: Yes (Hospitalization)
  Sender: FDA-Public Use
  Company Number: None

PATIENT
  Age: 61 Year
  Sex: Male
  Weight: 71.5 kg

DRUGS (1)
  1. WARFARIN [Suspect]
     Dosage: 7.5 MG, EVERY DAY, PO
     Route: 048
     Dates: start: 20110324

REACTIONS (3)
  - Haematochezia [None]
  - International normalised ratio increased [None]
  - Drug interaction [None]
